FAERS Safety Report 21478310 (Version 1)
Quarter: 2022Q4

REPORT INFORMATION
  Report Type: Spontaneous
  Country: US (occurrence: US)
  Receive Date: 20221019
  Receipt Date: 20221019
  Transmission Date: 20230113
  Serious: Yes (Other)
  Sender: FDA-Public Use
  Company Number: US-SA-SAC20221018000965

PATIENT
  Age: 64 Year
  Sex: Male

DRUGS (1)
  1. DUPIXENT [Suspect]
     Active Substance: DUPILUMAB
     Indication: Dermatitis atopic
     Dosage: 300 MG, QOW
     Route: 058

REACTIONS (6)
  - Prostatomegaly [Unknown]
  - Urinary retention [Unknown]
  - Hypoaesthesia [Unknown]
  - Fibromyalgia [Unknown]
  - Dermatitis atopic [Unknown]
  - Product dose omission in error [Unknown]
